FAERS Safety Report 14659146 (Version 2)
Quarter: 2018Q2

REPORT INFORMATION
  Report Type: Spontaneous
  Country: US (occurrence: US)
  Receive Date: 20180320
  Receipt Date: 20180625
  Transmission Date: 20180711
  Serious: Yes (Hospitalization)
  Sender: FDA-Public Use
  Company Number: US-VERTEX PHARMACEUTICALS-2018-001871

PATIENT
  Age: 36 Year
  Sex: Male

DRUGS (15)
  1. AMICAR [Concomitant]
     Active Substance: AMINOCAPROIC ACID
  2. PANCREAZE                          /00150201/ [Concomitant]
  3. SODIUM CHLORIDE. [Suspect]
     Active Substance: SODIUM CHLORIDE
     Indication: CYSTIC FIBROSIS
     Dosage: 4 MILLILITER, BID
     Route: 065
  4. NASONEX [Concomitant]
     Active Substance: MOMETASONE FUROATE
  5. CAYSTON [Concomitant]
     Active Substance: AZTREONAM
  6. TOBI [Concomitant]
     Active Substance: TOBRAMYCIN
  7. MEPHYTON [Concomitant]
     Active Substance: PHYTONADIONE
  8. ADVAIR HFA [Concomitant]
     Active Substance: FLUTICASONE PROPIONATE\SALMETEROL XINAFOATE
  9. MIRALAX [Concomitant]
     Active Substance: POLYETHYLENE GLYCOL 3350
  10. NOVOLOG [Concomitant]
     Active Substance: INSULIN ASPART
  11. AZITHROMYCIN ANHYDROUS. [Concomitant]
     Active Substance: AZITHROMYCIN ANHYDROUS
  12. ORKAMBI [Suspect]
     Active Substance: IVACAFTOR\LUMACAFTOR
     Indication: CYSTIC FIBROSIS
     Dosage: 2 DOSAGE FORM (200/125 MG EACH), BID
     Route: 048
     Dates: start: 201507
  13. ALBUTEROL                          /00139501/ [Concomitant]
     Active Substance: ALBUTEROL
  14. ANDRODERM [Concomitant]
     Active Substance: TESTOSTERONE
  15. LANTUS [Concomitant]
     Active Substance: INSULIN GLARGINE

REACTIONS (1)
  - Haemoptysis [Recovered/Resolved]

NARRATIVE: CASE EVENT DATE: 20180224
